FAERS Safety Report 5591780-0 (Version None)
Quarter: 2008Q1

REPORT INFORMATION
  Report Type: 
  Country: None (occurrence: None)
  Receive Date: 20080115
  Receipt Date: 20080103
  Transmission Date: 20080703
  Serious: Yes (Other)
  Sender: FDA-Public Use
  Company Number: B0360432A

PATIENT
  Sex: Female

DRUGS (7)
  1. PAROXETINE HYDROCHLORIDE [Suspect]
     Indication: DEPRESSION
     Route: 065
     Dates: start: 19991210
  2. METHOTREXATE [Concomitant]
  3. VIOXX [Concomitant]
  4. CYCLOSPORINE [Concomitant]
  5. ZOTON [Concomitant]
  6. RANITIDINE [Concomitant]
  7. DOMPERIDONE [Concomitant]

REACTIONS (24)
  - AGGRESSION [None]
  - AMNESIA [None]
  - ANOREXIA [None]
  - ANXIETY [None]
  - BALANCE DISORDER [None]
  - CONFUSIONAL STATE [None]
  - DEPRESSION [None]
  - DIZZINESS [None]
  - DYSKINESIA [None]
  - DYSPEPSIA [None]
  - DYSPHAGIA [None]
  - FATIGUE [None]
  - HEADACHE [None]
  - LIBIDO DECREASED [None]
  - MOOD SWINGS [None]
  - MYALGIA [None]
  - NAUSEA [None]
  - NIGHTMARE [None]
  - PARAESTHESIA [None]
  - SUICIDAL IDEATION [None]
  - THINKING ABNORMAL [None]
  - WEIGHT DECREASED [None]
  - WEIGHT INCREASED [None]
  - WITHDRAWAL SYNDROME [None]
